FAERS Safety Report 15471740 (Version 1)
Quarter: 2018Q4

REPORT INFORMATION
  Report Type: Report from Study
  Country: US (occurrence: US)
  Receive Date: 20181008
  Receipt Date: 20181008
  Transmission Date: 20190205
  Serious: Yes (Hospitalization)
  Sender: FDA-Public Use
  Company Number: US-IPSEN BIOPHARMACEUTICALS, INC.-2018-13992

PATIENT
  Age: 39 Year
  Sex: Male
  Weight: 102.06 kg

DRUGS (2)
  1. ONIVYDE [Suspect]
     Active Substance: IRINOTECAN HYDROCHLORIDE
     Indication: GLIOBLASTOMA
     Dosage: 50 MG/M2
     Route: 042
     Dates: start: 2018, end: 20180810
  2. TEMOZOLAMIDE [Suspect]
     Active Substance: TEMOZOLOMIDE
     Indication: GLIOBLASTOMA
     Dosage: 50 MG/ M2/DAY=120 MG/DAY, 1680 MG TOTAL DOSE, QD,PO
     Route: 048
     Dates: start: 2018, end: 20180823

REACTIONS (1)
  - Craniotomy [Unknown]

NARRATIVE: CASE EVENT DATE: 20180906
